FAERS Safety Report 9916207 (Version 1)
Quarter: 2014Q1

REPORT INFORMATION
  Report Type: Spontaneous
  Country: US (occurrence: None)
  Receive Date: 20140220
  Receipt Date: 20140220
  Transmission Date: 20141002
  Serious: Yes (Disabling)
  Sender: FDA-Public Use
  Company Number: None

PATIENT
  Age: 55 Year
  Sex: Female
  Weight: 77.11 kg

DRUGS (1)
  1. LAMOTRIGINE [Suspect]
     Indication: MOOD ALTERED
     Dosage: 1 DAY FOR 15 DAYS, THEN INCR ONCE DAILY TAKEN BY MOUTH
     Route: 048

REACTIONS (4)
  - Aggression [None]
  - Bruxism [None]
  - Toothache [None]
  - Oral pain [None]
